FAERS Safety Report 9099651 (Version 4)
Quarter: 2013Q3

REPORT INFORMATION
  Report Type: Report from Study
  Country: IL (occurrence: IL)
  Receive Date: 20130214
  Receipt Date: 20130712
  Transmission Date: 20140515
  Serious: Yes (Hospitalization)
  Sender: FDA-Public Use
  Company Number: PHHO2013IL002437

PATIENT
  Age: 72 Year
  Sex: Male
  Weight: 84.2 kg

DRUGS (10)
  1. BLINDED ACZ885 [Suspect]
     Indication: ARTERIOSCLEROSIS
     Dosage: DOUBLE BLINDED
     Route: 058
     Dates: start: 20120417
  2. BLINDED PLACEBO [Suspect]
     Indication: ARTERIOSCLEROSIS
     Dosage: DOUBLE BLINDED
     Route: 058
     Dates: start: 20120417
  3. BLINDED ACZ885 [Suspect]
     Indication: TYPE 2 DIABETES MELLITUS
  4. BLINDED PLACEBO [Suspect]
     Indication: TYPE 2 DIABETES MELLITUS
  5. JANUMET [Concomitant]
     Indication: DIABETES MELLITUS
     Dosage: 50 (850 M)X2
  6. FUSID [Concomitant]
     Indication: MYOCARDIAL ISCHAEMIA
     Dosage: 20 MG, QD
  7. EZETROL [Concomitant]
     Indication: HYPERLIPIDAEMIA
     Dosage: 10 MG, QD
  8. ENALAPRIL [Concomitant]
     Indication: HYPERTENSION
     Dosage: 10 MG, BID
  9. NORMITEN [Concomitant]
     Indication: HYPERTENSION
     Dosage: 6.25X1
  10. COSEC [Concomitant]
     Indication: PROPHYLAXIS
     Dosage: 20 MG, QD

REACTIONS (1)
  - Epiglottitis [Recovered/Resolved]
